FAERS Safety Report 23329641 (Version 3)
Quarter: 2024Q1

REPORT INFORMATION
  Report Type: Report from Study
  Country: AT (occurrence: AT)
  Receive Date: 20231222
  Receipt Date: 20240325
  Transmission Date: 20240410
  Serious: Yes (Other)
  Sender: FDA-Public Use
  Company Number: TRAVERE

PATIENT
  Age: 18 Year
  Sex: Male
  Weight: 98 kg

DRUGS (5)
  1. FILSPARI [Suspect]
     Active Substance: SPARSENTAN
     Indication: IgA nephropathy
     Dosage: IN THE MORNING
     Route: 048
  2. FILSPARI [Suspect]
     Active Substance: SPARSENTAN
     Dosage: SWITCHED FROM MORNING TO EVENING DOSE ADMINISTRATION; DECREASED DOSE
     Route: 048
     Dates: start: 202311
  3. DAPAGLIFLOZIN [Concomitant]
     Active Substance: DAPAGLIFLOZIN
     Indication: IgA nephropathy
     Route: 050
     Dates: start: 20030620
  4. DAPAGLIFLOZIN [Concomitant]
     Active Substance: DAPAGLIFLOZIN
     Indication: IgA nephropathy
     Route: 050
     Dates: start: 20230629
  5. ATORVASTATIN [Concomitant]
     Active Substance: ATORVASTATIN
     Indication: Hyperlipidaemia
     Route: 050
     Dates: start: 20230629

REACTIONS (4)
  - Hyperkalaemia [Unknown]
  - Glomerular filtration rate decreased [Unknown]
  - Dizziness [Recovered/Resolved]
  - Hypotension [Recovered/Resolved]

NARRATIVE: CASE EVENT DATE: 20231101
